FAERS Safety Report 13848617 (Version 1)
Quarter: 2017Q3

REPORT INFORMATION
  Report Type: Spontaneous
  Country: US (occurrence: US)
  Receive Date: 20170809
  Receipt Date: 20170809
  Transmission Date: 20171127
  Serious: Yes (Hospitalization, Other)
  Sender: FDA-Public Use
  Company Number: US-ZYDUS-016010

PATIENT
  Age: 51 Year
  Sex: Female

DRUGS (1)
  1. NITROGLYCERIN. [Suspect]
     Active Substance: NITROGLYCERIN
     Indication: TILT TABLE TEST
     Route: 060

REACTIONS (11)
  - Hypotension [Recovered/Resolved]
  - Metanephrine urine increased [Recovered/Resolved]
  - Normetanephrine urine increased [Recovered/Resolved]
  - Nasopharyngitis [Recovered/Resolved]
  - Cardiopulmonary failure [Recovered/Resolved]
  - Skin discolouration [Recovered/Resolved]
  - Unmasking of previously unidentified disease [Unknown]
  - Hypertensive emergency [Recovered/Resolved]
  - Pulmonary oedema [Recovered/Resolved]
  - Cold sweat [Recovered/Resolved]
  - Respiratory distress [Recovered/Resolved]
